FAERS Safety Report 4945499-7 (Version None)
Quarter: 2006Q1

REPORT INFORMATION
  Report Type: 
  Country: None (occurrence: None)
  Receive Date: 20060117
  Receipt Date: 20051010
  Transmission Date: 20060701
  Serious: Yes (Other)
  Sender: FDA-Public Use
  Company Number: A03200503215

PATIENT
  Age: 83 Year
  Sex: Male
  Weight: 95.2554 kg

DRUGS (4)
  1. PLAVIX [Suspect]
     Indication: TRANSIENT ISCHAEMIC ATTACK
     Dosage: 75 MG QD - ORAL
     Route: 048
     Dates: start: 20050927
  2. PLAVIX [Suspect]
     Indication: TRANSIENT ISCHAEMIC ATTACK
     Dosage: 300 MG ONCE - ORAL
     Route: 048
     Dates: start: 20050926, end: 20050926
  3. ATORVASTATIN CALCIUM [Concomitant]
  4. ENALAPRIL MALEATE [Concomitant]

REACTIONS (2)
  - DIARRHOEA [None]
  - HYPNOPOMPIC HALLUCINATION [None]
